FAERS Safety Report 24862552 (Version 1)
Quarter: 2025Q1

REPORT INFORMATION
  Report Type: Spontaneous
  Country: US (occurrence: US)
  Receive Date: 20250120
  Receipt Date: 20250120
  Transmission Date: 20250408
  Serious: Yes (Other)
  Sender: AMGEN
  Company Number: US-AMGEN-USASP2025007231

PATIENT
  Age: 58 Year
  Sex: Female
  Weight: 72.653 kg

DRUGS (23)
  1. AIMOVIG [Suspect]
     Active Substance: ERENUMAB-AOOE
     Indication: Migraine
     Route: 065
  2. PREDNISONE [Suspect]
     Active Substance: PREDNISONE
     Indication: Product used for unknown indication
     Route: 065
     Dates: start: 20241022, end: 20241027
  3. KESIMPTA [Suspect]
     Active Substance: OFATUMUMAB
     Indication: Product used for unknown indication
     Route: 065
  4. BENZTROPINE [Concomitant]
     Active Substance: BENZTROPINE
     Dosage: 1 MILLIGRAM, BID
     Route: 048
  5. DIVALPROEX SODIUM [Concomitant]
     Active Substance: DIVALPROEX SODIUM
     Dosage: 250 MILLIGRAM, QHS
     Route: 048
  6. LEVOTHYROXINE [Concomitant]
     Active Substance: LEVOTHYROXINE
     Dosage: 25 MICROGRAM, QD
     Route: 048
  7. PANTOPRAZOLE [Concomitant]
     Active Substance: PANTOPRAZOLE
     Dosage: 40 MILLIGRAM, QD
     Route: 048
  8. QUETIAPINE [Concomitant]
     Active Substance: QUETIAPINE
     Dosage: 300 MILLIGRAM, QD
     Route: 048
  9. SERTRALINE [Concomitant]
     Active Substance: SERTRALINE HYDROCHLORIDE
     Dosage: 100 MILLIGRAM, QD
     Route: 048
  10. TRAZODONE [Concomitant]
     Active Substance: TRAZODONE HYDROCHLORIDE
     Dosage: 150 MILLIGRAM, QHS
     Route: 048
  11. ELIQUIS [Concomitant]
     Active Substance: APIXABAN
     Dosage: 5 MILLIGRAM, BID
     Route: 048
  12. INVEGA [Concomitant]
     Active Substance: PALIPERIDONE
     Dosage: 3 MILLIGRAM, QD
     Route: 048
  13. IRON [Concomitant]
     Active Substance: IRON
     Dosage: 150 MILLIGRAM, BID
     Route: 048
  14. LISINOPRIL [Concomitant]
     Active Substance: LISINOPRIL
     Dosage: 5 MILLIGRAM, QD
     Route: 048
  15. METOPROLOL TARTRATE [Concomitant]
     Active Substance: METOPROLOL TARTRATE
     Dosage: 50 MILLIGRAM, BID
     Route: 048
     Dates: start: 20240422
  16. PREDNISONE ACETATE [Concomitant]
     Active Substance: PREDNISONE ACETATE
     Dosage: UNK UNK, QID
  17. VITAMIN D [Concomitant]
     Active Substance: VITAMIN D NOS
  18. CYCLOBENZAPRINE [Concomitant]
     Active Substance: CYCLOBENZAPRINE
     Dosage: 10 MILLIGRAM, QHS
     Route: 048
     Dates: start: 20241022
  19. METFORMIN [Concomitant]
     Active Substance: METFORMIN HYDROCHLORIDE
     Dosage: 850 MILLIGRAM, BID
     Route: 048
  20. VITAMIN D3 [Concomitant]
     Active Substance: CHOLECALCIFEROL
     Dosage: 125 MICROGRAM, QD
     Route: 048
     Dates: start: 20241022
  21. BUSPIRONE [Concomitant]
     Active Substance: BUSPIRONE HYDROCHLORIDE
     Dosage: 10 MILLIGRAM, BID
     Route: 048
     Dates: start: 20240422
  22. ISOSORBIDE MONONITRATE [Concomitant]
     Active Substance: ISOSORBIDE MONONITRATE
     Dosage: UNK UNK, QD
     Route: 048
     Dates: start: 20240422
  23. LANTUS SOLOSTAR [Concomitant]
     Active Substance: INSULIN GLARGINE
     Route: 058
     Dates: start: 20240422

REACTIONS (25)
  - Spinal fracture [Unknown]
  - Multiple sclerosis [Unknown]
  - Compression fracture [Unknown]
  - Demyelination [Unknown]
  - Spondylolisthesis [Unknown]
  - Spinal stenosis [Unknown]
  - Anxiety [Unknown]
  - Urinary tract infection [Unknown]
  - Sinus disorder [Unknown]
  - Vision blurred [Unknown]
  - Dizziness [Unknown]
  - Pyrexia [Unknown]
  - Memory impairment [Unknown]
  - Nausea [Unknown]
  - Musculoskeletal stiffness [Unknown]
  - Performance status decreased [Unknown]
  - Personality change [Unknown]
  - Vertigo [Unknown]
  - Eye disorder [Unknown]
  - Neck pain [Unknown]
  - Balance disorder [Unknown]
  - Fall [Unknown]
  - Restless legs syndrome [Unknown]
  - Intervertebral disc degeneration [Unknown]
  - Headache [Unknown]

NARRATIVE: CASE EVENT DATE: 20240311
